FAERS Safety Report 7270454-4 (Version None)
Quarter: 2011Q1

REPORT INFORMATION
  Report Type: 
  Country: None (occurrence: None)
  Receive Date: 20110202
  Receipt Date: 20110126
  Transmission Date: 20110831
  Serious: Yes (Hospitalization)
  Sender: FDA-Public Use
  Company Number: US-US-EMD SERONO, INC.-7000441

PATIENT
  Sex: Female
  Weight: 59 kg

DRUGS (3)
  1. OTHER MANY UNSPECIFIED MEDICATIONS [Concomitant]
  2. REBIF [Suspect]
     Indication: MULTIPLE SCLEROSIS
     Route: 058
     Dates: start: 20050216
  3. DILAUDID [Concomitant]
     Route: 037

REACTIONS (6)
  - CYST [None]
  - GAIT DISTURBANCE [None]
  - FOOT DEFORMITY [None]
  - FALL [None]
  - STAPHYLOCOCCAL INFECTION [None]
  - INFECTED CYST [None]
